FAERS Safety Report 5351936-9 (Version None)
Quarter: 2007Q2

REPORT INFORMATION
  Report Type: 
  Country: None (occurrence: None)
  Receive Date: 20070521
  Receipt Date: 20070309
  Transmission Date: 20071010
  Serious: No
  Sender: FDA-Public Use
  Company Number: WAES 0703USA01949

PATIENT
  Sex: Male

DRUGS (1)
  1. JANUVIA [Suspect]
     Dosage: PO
     Route: 048

REACTIONS (1)
  - HEADACHE [None]
